FAERS Safety Report 20000852 (Version 1)
Quarter: 2021Q4

REPORT INFORMATION
  Report Type: Spontaneous
  Country: US (occurrence: US)
  Receive Date: 20211026
  Receipt Date: 20211026
  Transmission Date: 20220303
  Serious: Yes (Hospitalization)
  Sender: FDA-Public Use
  Company Number: None

PATIENT
  Sex: Female

DRUGS (8)
  1. MYCOPHENOLIC ACID [Suspect]
     Active Substance: MYCOPHENOLIC ACID
     Indication: Renal transplant
     Route: 048
     Dates: start: 20210413
  2. TACROLIMUS [Concomitant]
     Active Substance: TACROLIMUS
  3. ONDANSETRON [Concomitant]
     Active Substance: ONDANSETRON
  4. LOVASTATIN [Concomitant]
     Active Substance: LOVASTATIN
  5. LOSARTAN [Concomitant]
     Active Substance: LOSARTAN
  6. LISINOPRIL [Concomitant]
     Active Substance: LISINOPRIL
  7. CALCITRIOL [Concomitant]
     Active Substance: CALCITRIOL
  8. ANASTROZOLE [Concomitant]
     Active Substance: ANASTROZOLE

REACTIONS (2)
  - Ear infection [None]
  - Pneumonia [None]
